FAERS Safety Report 24106790 (Version 2)
Quarter: 2024Q3

REPORT INFORMATION
  Report Type: Report from Study
  Country: IT (occurrence: IT)
  Receive Date: 20240717
  Receipt Date: 20240809
  Transmission Date: 20241017
  Serious: Yes (Other)
  Sender: TEVA
  Company Number: None

PATIENT
  Age: 5 Year
  Sex: Female
  Weight: 21 kg

DRUGS (4)
  1. METHOTREXATE [Suspect]
     Active Substance: METHOTREXATE
     Indication: B-cell type acute leukaemia
     Dosage: 1347.34 MG INFUSION OVER 1410 MIN. ON 04/22/2024?380.00 MG INFUSION OVER 30 MIN. + 3400 MG INFUSI...
     Route: 042
     Dates: start: 20240422, end: 20240611
  2. METHOTREXATE [Suspect]
     Active Substance: METHOTREXATE
     Indication: B-cell type acute leukaemia
     Dosage: 380.00 MG INFUSION OVER 30 MIN. + 2052.66 MG INFUSION IN 1410 MIN.
     Route: 042
     Dates: start: 20240422, end: 20240422
  3. LEUCOVORIN CALCIUM [Concomitant]
     Active Substance: LEUCOVORIN CALCIUM
     Indication: Toxicity to various agents
     Dosage: 6 MG X 3 SUMMATIONS.
     Route: 042
     Dates: start: 20240612, end: 20240613
  4. PURINETHOL [Suspect]
     Active Substance: MERCAPTOPURINE
     Indication: B-cell type acute leukaemia
     Dosage: 50 MG/DAY FOR 4 DAYS A WEEK
     Route: 048
     Dates: start: 20240417, end: 20240614

REACTIONS (6)
  - Neutropenia [Recovered/Resolved]
  - Hyperpyrexia [Recovered/Resolved]
  - Stomatitis [Recovered/Resolved]
  - Erythema [Recovered/Resolved]
  - Thrombocytopenia [Recovered/Resolved]
  - Nausea [Recovered/Resolved]

NARRATIVE: CASE EVENT DATE: 20240426
